FAERS Safety Report 8822806 (Version 1)
Quarter: 2012Q4

REPORT INFORMATION
  Report Type: 
  Country: US (occurrence: US)
  Receive Date: 20121003
  Receipt Date: 20121003
  Transmission Date: 20130627
  Serious: No
  Sender: FDA-Public Use
  Company Number: US-BAYER-2012-102477

PATIENT
  Age: 80 Year
  Sex: Female
  Weight: 72.56 kg

DRUGS (8)
  1. ALEVE CAPLET/TABLET,MIDOL EXTENDED RELIEF CAPLET [Suspect]
     Indication: ARTHRITIS
     Dosage: 1 DF, BID
     Route: 048
     Dates: start: 20120912, end: 20120925
  2. BAYER ASPIRIN REGIMEN ADULT LOW STRENGTH [Concomitant]
     Indication: ISCHAEMIC HEART DISEASE PROPHYLAXIS
  3. IMIPRAMINE HCL [Concomitant]
  4. THROID PILL [Concomitant]
  5. ZYRTEC [CETIRIZINE HYDROCHLORIDE,PSEUDOEPHEDRINE HYDROCHLORIDE] [Concomitant]
  6. LOSARTAN [Concomitant]
     Indication: HYPERTENSION
  7. MULTI-VITAMIN [Concomitant]
  8. TRAVATAN [Concomitant]

REACTIONS (1)
  - No adverse event [None]
